FAERS Safety Report 19210673 (Version 1)
Quarter: 2021Q2

REPORT INFORMATION
  Report Type: Spontaneous
  Country: US (occurrence: US)
  Receive Date: 20210503
  Receipt Date: 20210503
  Transmission Date: 20210717
  Serious: Yes (Hospitalization)
  Sender: FDA-Public Use
  Company Number: None

PATIENT
  Sex: Female

DRUGS (1)
  1. REPATHA [Suspect]
     Active Substance: EVOLOCUMAB
     Indication: COLITIS ULCERATIVE
     Dosage: 1 PEN Q2WK SQ
     Route: 058
     Dates: start: 20190303

REACTIONS (1)
  - Pancreatitis [None]
